FAERS Safety Report 20808716 (Version 2)
Quarter: 2022Q2

REPORT INFORMATION
  Report Type: Spontaneous
  Country: ZA (occurrence: ZA)
  Receive Date: 20220510
  Receipt Date: 20220513
  Transmission Date: 20220721
  Serious: Yes (Life-Threatening, Hospitalization)
  Sender: FDA-Public Use
  Company Number: ZA-PFIZER INC-202200644031

PATIENT
  Age: 28 Year
  Sex: Male

DRUGS (5)
  1. AMLODIPINE BESYLATE [Suspect]
     Active Substance: AMLODIPINE BESYLATE
     Dosage: UNK
  2. INSULIN NOS [Concomitant]
     Active Substance: INSULIN NOS
     Dosage: 2U/KG/HOUR
  3. CALCIUM [Concomitant]
     Active Substance: CALCIUM
  4. METHYLENE BLUE [Concomitant]
     Active Substance: METHYLENE BLUE
     Dosage: 2 MG/KG
  5. EPINEPHRINE [Concomitant]
     Active Substance: EPINEPHRINE
     Dosage: 1UG/KG/MINUTE

REACTIONS (3)
  - Toxicity to various agents [Unknown]
  - Shock [Unknown]
  - Overdose [Unknown]
